FAERS Safety Report 17748367 (Version 1)
Quarter: 2020Q2

REPORT INFORMATION
  Report Type: Spontaneous
  Country: GB (occurrence: GB)
  Receive Date: 20200506
  Receipt Date: 20200506
  Transmission Date: 20200714
  Serious: Yes (Death, Other)
  Sender: FDA-Public Use
  Company Number: GB-AUROBINDO-08-AUR-06727

PATIENT
  Age: 74 Year
  Sex: Male

DRUGS (8)
  1. AMLODIPINE [Suspect]
     Active Substance: AMLODIPINE BESYLATE
     Indication: PRODUCT USED FOR UNKNOWN INDICATION
     Dosage: 5 MG,ONCE A DAY,
     Route: 048
  2. THYROXINE SODIUM [Concomitant]
     Active Substance: LEVOTHYROXINE SODIUM
     Indication: PRODUCT USED FOR UNKNOWN INDICATION
     Dosage: UNK UNK,UNK,
     Route: 065
  3. SIMVASTATIN 10 MG TABLET [Suspect]
     Active Substance: SIMVASTATIN
     Indication: PRODUCT USED FOR UNKNOWN INDICATION
     Dosage: UNK UNK,UNK,
     Route: 048
  4. ASPIRIN. [Suspect]
     Active Substance: ASPIRIN
     Indication: PRODUCT USED FOR UNKNOWN INDICATION
     Dosage: 75 MG,ONCE A DAY,
     Route: 048
  5. OMEPRAZOLE. [Suspect]
     Active Substance: OMEPRAZOLE
     Indication: PRODUCT USED FOR UNKNOWN INDICATION
     Dosage: 20 MG,ONCE A DAY,
     Route: 048
  6. PERINDOPRIL 8 MG TABLETS [Suspect]
     Active Substance: PERINDOPRIL
     Indication: PRODUCT USED FOR UNKNOWN INDICATION
     Dosage: 8 MG,ONCE A DAY,
     Route: 048
  7. IBUPROFEN  200 MG TABLETS [Suspect]
     Active Substance: IBUPROFEN
     Indication: PRODUCT USED FOR UNKNOWN INDICATION
     Dosage: 400 MG,UNK,
     Route: 048
  8. AMOXICILLIN. [Concomitant]
     Active Substance: AMOXICILLIN
     Indication: PRODUCT USED FOR UNKNOWN INDICATION
     Dosage: 500 MG,3 TIMES A DAY,
     Route: 065

REACTIONS (15)
  - Decreased appetite [Fatal]
  - Drug eruption [Fatal]
  - Haemoptysis [Fatal]
  - Dermatomyositis [Fatal]
  - Oropharyngeal pain [Fatal]
  - Renal tubular necrosis [Fatal]
  - Alveolitis [Fatal]
  - Cough [Fatal]
  - Muscular weakness [Fatal]
  - Acute kidney injury [Fatal]
  - Rash [Fatal]
  - Acute respiratory distress syndrome [Fatal]
  - Respiratory failure [Fatal]
  - Lower respiratory tract infection [Fatal]
  - Weight decreased [Fatal]

NARRATIVE: CASE EVENT DATE: 2008
